FAERS Safety Report 9711477 (Version 1)
Quarter: 2013Q4

REPORT INFORMATION
  Report Type: Spontaneous
  Country: US (occurrence: US)
  Receive Date: 20131126
  Receipt Date: 20131126
  Transmission Date: 20140711
  Serious: No
  Sender: FDA-Public Use
  Company Number: US-BRISTOL-MYERS SQUIBB COMPANY-18760124

PATIENT
  Age: 65 Year
  Sex: Female
  Weight: 101.58 kg

DRUGS (3)
  1. BYDUREON [Suspect]
  2. METFORMIN HCL [Concomitant]
     Route: 048
  3. JANUVIA [Concomitant]
     Route: 048

REACTIONS (3)
  - Injection site reaction [Unknown]
  - Injection site bruising [Unknown]
  - Injection site pain [Unknown]
